FAERS Safety Report 10151523 (Version 1)
Quarter: 2014Q2

REPORT INFORMATION
  Report Type: Spontaneous
  Country: US (occurrence: US)
  Receive Date: 20140505
  Receipt Date: 20140505
  Transmission Date: 20141212
  Serious: Yes (Hospitalization)
  Sender: FDA-Public Use
  Company Number: US-JNJCP-30000216895

PATIENT
  Sex: Female
  Weight: 12 kg

DRUGS (1)
  1. AVEENO BABY ECZEMA THERAPY MOISTURIZING CREAM [Suspect]
     Indication: ECZEMA
     Dosage: SMALL AMOUNT, ONCE A DAY
     Route: 061

REACTIONS (1)
  - Application site rash [Unknown]
